FAERS Safety Report 6895679-9 (Version None)
Quarter: 2010Q3

REPORT INFORMATION
  Report Type: 
  Country: None (occurrence: None)
  Receive Date: 20100802
  Receipt Date: 20100723
  Transmission Date: 20110219
  Serious: Yes (Hospitalization, Other)
  Sender: FDA-Public Use
  Company Number: JP-JNJFOC-20090903204

PATIENT
  Sex: Male
  Weight: 73 kg

DRUGS (45)
  1. LEUSTATIN [Suspect]
     Indication: HAIRY CELL LEUKAEMIA
     Route: 041
  2. MYCOSYST [Concomitant]
     Indication: ANTIBIOTIC PROPHYLAXIS
     Route: 048
     Dates: start: 20070730, end: 20070801
  3. MYCOSYST [Concomitant]
     Indication: FUNGAL INFECTION
     Route: 048
     Dates: start: 20070730, end: 20070801
  4. MYCOSYST [Concomitant]
     Indication: PNEUMOCYSTIS JIROVECI PNEUMONIA
     Route: 048
     Dates: start: 20070730, end: 20070801
  5. COTRIM [Concomitant]
     Indication: ANTIFUNGAL PROPHYLAXIS
     Route: 048
     Dates: start: 20070730, end: 20070801
  6. COTRIM [Concomitant]
     Indication: ANTIBIOTIC PROPHYLAXIS
     Route: 048
     Dates: start: 20070730, end: 20070801
  7. COTRIM [Concomitant]
     Indication: FUNGAL INFECTION
     Route: 048
     Dates: start: 20070730, end: 20070801
  8. COTRIM [Concomitant]
     Indication: PNEUMOCYSTIS JIROVECI PNEUMONIA
     Route: 048
     Dates: start: 20070730, end: 20070801
  9. ISCOTIN [Concomitant]
     Indication: ANTIBIOTIC PROPHYLAXIS
     Route: 048
     Dates: start: 20070730, end: 20070801
  10. ISCOTIN [Concomitant]
     Indication: FUNGAL INFECTION
     Route: 048
     Dates: start: 20070730, end: 20070801
  11. ISCOTIN [Concomitant]
     Indication: PNEUMOCYSTIS JIROVECI PNEUMONIA
     Route: 048
     Dates: start: 20070730, end: 20070801
  12. POLARAMINE [Concomitant]
     Route: 041
     Dates: start: 20070730, end: 20070813
  13. NEUTROGIN [Concomitant]
     Route: 041
     Dates: start: 20070728, end: 20070806
  14. PENTCILLIN [Concomitant]
     Indication: TONSILLAR INFLAMMATION
     Route: 041
  15. TAZOCIN [Concomitant]
     Indication: TONSILLAR INFLAMMATION
     Route: 041
     Dates: start: 20070719, end: 20070727
  16. AMIKACIN SULFATE [Concomitant]
     Indication: TONSILLAR INFLAMMATION
     Route: 041
     Dates: start: 20070719, end: 20070724
  17. CLIDAMACIN [Concomitant]
     Indication: TONSILLAR INFLAMMATION
     Route: 041
     Dates: start: 20070725, end: 20070730
  18. IMIPENEM AND CILASTATIN [Concomitant]
     Indication: TONSILLAR INFLAMMATION
     Route: 041
     Dates: start: 20070728, end: 20070730
  19. LOXONIN [Concomitant]
     Indication: ANALGESIC THERAPY
     Dosage: 60 MG- 180 MG P.R.N
     Route: 048
     Dates: start: 20070717, end: 20070718
  20. ROPION [Concomitant]
     Indication: ANALGESIC THERAPY
     Dosage: P.R.N
     Route: 041
     Dates: start: 20070719, end: 20070720
  21. ZITHROMAC [Concomitant]
     Indication: TONSILLAR INFLAMMATION
     Route: 048
     Dates: start: 20070718, end: 20070720
  22. SEISHOKU [Concomitant]
     Indication: MEDICATION DILUTION
     Route: 041
     Dates: start: 20070719, end: 20070731
  23. SEISHOKU [Concomitant]
     Route: 041
     Dates: start: 20070719, end: 20070731
  24. SEISHOKU [Concomitant]
     Dosage: 1 D.F- 4 D.F P.R.N
     Route: 041
     Dates: start: 20070719, end: 20070731
  25. SEISHOKU [Concomitant]
     Indication: ANTIPYRESIS
     Route: 041
     Dates: start: 20070719, end: 20070731
  26. SEISHOKU [Concomitant]
     Dosage: 1 D.F- 4 D.F P.R.N
     Route: 041
     Dates: start: 20070719, end: 20070731
  27. SEISHOKU [Concomitant]
     Route: 041
     Dates: start: 20070719, end: 20070731
  28. SEISHOKU [Concomitant]
     Indication: ANALGESIC THERAPY
     Dosage: 1 D.F- 4 D.F P.R.N
     Route: 041
     Dates: start: 20070719, end: 20070731
  29. SEISHOKU [Concomitant]
     Route: 041
     Dates: start: 20070719, end: 20070731
  30. SEISHOKU [Concomitant]
     Route: 041
     Dates: start: 20070719, end: 20070731
  31. METILON [Concomitant]
     Indication: ANTIPYRESIS
     Dosage: 2- 4 A P.R.N
     Route: 041
     Dates: start: 20070719, end: 20070731
  32. METILON [Concomitant]
     Indication: ANALGESIC THERAPY
     Dosage: 2- 4 A P.R.N
     Route: 041
     Dates: start: 20070719, end: 20070731
  33. LASIX [Concomitant]
     Indication: OEDEMA
     Route: 042
     Dates: start: 20070724, end: 20070730
  34. RAMELTEON [Concomitant]
     Indication: PROPHYLAXIS OF NAUSEA AND VOMITING
     Route: 041
     Dates: start: 20070720, end: 20070726
  35. GASTER [Concomitant]
     Indication: PROPHYLAXIS AGAINST GASTROINTESTINAL ULCER
     Route: 041
  36. CRAVIT [Concomitant]
     Indication: TONSILLAR INFLAMMATION
     Route: 048
     Dates: start: 20070730, end: 20070801
  37. AUGMENTIN '125' [Concomitant]
     Indication: TONSILLAR INFLAMMATION
     Route: 048
     Dates: start: 20070730, end: 20070801
  38. UNKNOWN MEDICATION [Concomitant]
     Indication: ANALGESIC THERAPY
     Route: 041
     Dates: start: 20070720, end: 20070722
  39. PENTAZOCINE LACTATE [Concomitant]
     Indication: ANALGESIC THERAPY
     Route: 041
  40. MYSER [Concomitant]
     Indication: RASH
     Dosage: P.R.N
     Route: 061
  41. ALLELOCK [Concomitant]
     Indication: PRODUCT USED FOR UNKNOWN INDICATION
     Route: 048
  42. SOLU-CORTEF [Concomitant]
     Indication: ANALGESIC THERAPY
     Route: 041
  43. SOLU-CORTEF [Concomitant]
     Route: 041
  44. SOLU-CORTEF [Concomitant]
     Indication: ANTIPYRESIS
     Route: 041
  45. SOLU-CORTEF [Concomitant]
     Route: 041

REACTIONS (11)
  - ALANINE AMINOTRANSFERASE INCREASED [None]
  - BLOOD ALBUMIN DECREASED [None]
  - BLOOD POTASSIUM DECREASED [None]
  - EOSINOPHIL COUNT INCREASED [None]
  - EOSINOPHILIA [None]
  - GAMMA-GLUTAMYLTRANSFERASE INCREASED [None]
  - LEUKOPENIA [None]
  - LYMPHOCYTE COUNT DECREASED [None]
  - MONOCYTE COUNT INCREASED [None]
  - OEDEMA [None]
  - RASH [None]
